FAERS Safety Report 5893844-0 (Version None)
Quarter: 2008Q3

REPORT INFORMATION
  Report Type: 
  Country: None (occurrence: None)
  Receive Date: 20080923
  Receipt Date: 20080702
  Transmission Date: 20090109
  Serious: No
  Sender: FDA-Public Use
  Company Number: US-ASTRAZENECA-2007UW25452

PATIENT
  Age: 46 Year
  Sex: Female
  Weight: 59 kg

DRUGS (8)
  1. SEROQUEL [Suspect]
     Indication: BIPOLAR I DISORDER
     Dosage: VARIOUS DOSES 50 MG TO 200 MG DAILY
     Route: 048
     Dates: start: 20040101
  2. SEROQUEL [Suspect]
     Indication: INSOMNIA
     Dosage: VARIOUS DOSES 50 MG TO 200 MG DAILY
     Route: 048
     Dates: start: 20040101
  3. SEROQUEL [Suspect]
     Route: 048
     Dates: start: 20071030, end: 20071030
  4. SEROQUEL [Suspect]
     Route: 048
     Dates: start: 20071030, end: 20071030
  5. XANAX [Concomitant]
  6. KLONOPIN [Concomitant]
  7. CYMBALTA [Concomitant]
  8. LYRICA [Concomitant]

REACTIONS (12)
  - AGORAPHOBIA [None]
  - ASTHENIA [None]
  - COMA [None]
  - EYELID FUNCTION DISORDER [None]
  - FEELING ABNORMAL [None]
  - FOOD CRAVING [None]
  - HEART RATE INCREASED [None]
  - HEART RATE IRREGULAR [None]
  - MOVEMENT DISORDER [None]
  - SOMNOLENCE [None]
  - VISION BLURRED [None]
  - WEIGHT INCREASED [None]
